FAERS Safety Report 8135388-1 (Version None)
Quarter: 2012Q1

REPORT INFORMATION
  Report Type: 
  Country: None (occurrence: None)
  Receive Date: 20120214
  Receipt Date: 20120201
  Transmission Date: 20120608
  Serious: Yes (Other)
  Sender: FDA-Public Use
  Company Number: FR-ROCHE-1036986

PATIENT
  Sex: Female

DRUGS (9)
  1. BISOPROLOL FUMARATE [Concomitant]
  2. ATORVASTATIN [Concomitant]
  3. SINGULAIR [Concomitant]
  4. SYMBICORT [Concomitant]
  5. ASPIRIN [Concomitant]
  6. FLUTICASONE FUROATE [Concomitant]
  7. CORTICOIDS (UNK INGREDIENTS) [Suspect]
     Indication: PRODUCT USED FOR UNKNOWN INDICATION
  8. LUCENTIS [Suspect]
     Indication: AGE-RELATED MACULAR DEGENERATION
     Route: 050
     Dates: start: 20110408
  9. ATACAND [Concomitant]

REACTIONS (2)
  - BRONCHITIS [None]
  - MACULAR DEGENERATION [None]
